FAERS Safety Report 16596260 (Version 1)
Quarter: 2019Q3

REPORT INFORMATION
  Report Type: Spontaneous
  Country: FR (occurrence: FR)
  Receive Date: 20190719
  Receipt Date: 20190719
  Transmission Date: 20191004
  Serious: Yes (Hospitalization)
  Sender: FDA-Public Use
  Company Number: FR-TEVA-2019-FR-1079037

PATIENT
  Age: 81 Year
  Sex: Female
  Weight: 55 kg

DRUGS (1)
  1. GEMCITABINE. [Suspect]
     Active Substance: GEMCITABINE
     Indication: PANCREATIC NEOPLASM
     Dosage: 1570 MILLIGRAM
     Route: 042
     Dates: start: 20181115, end: 20190419

REACTIONS (1)
  - Thrombotic microangiopathy [Not Recovered/Not Resolved]

NARRATIVE: CASE EVENT DATE: 201904
